FAERS Safety Report 7792210-0 (Version None)
Quarter: 2011Q4

REPORT INFORMATION
  Report Type: 
  Country: None (occurrence: None)
  Receive Date: 20111003
  Receipt Date: 20111003
  Transmission Date: 20120403
  Serious: Yes (Other)
  Sender: FDA-Public Use
  Company Number: None

PATIENT
  Age: 42 Year
  Sex: Female
  Weight: 53.07 kg

DRUGS (1)
  1. BOTOX [Suspect]
     Indication: SKIN COSMETIC PROCEDURE
     Dates: start: 20110921, end: 20110921

REACTIONS (8)
  - FACIAL PARESIS [None]
  - HEADACHE [None]
  - THINKING ABNORMAL [None]
  - FATIGUE [None]
  - PYREXIA [None]
  - EYELID PTOSIS [None]
  - DIZZINESS [None]
  - MUSCULAR WEAKNESS [None]
